FAERS Safety Report 12486497 (Version 1)
Quarter: 2016Q2

REPORT INFORMATION
  Report Type: Spontaneous
  Country: US (occurrence: US)
  Receive Date: 20160621
  Receipt Date: 20160621
  Transmission Date: 20160815
  Serious: No
  Sender: FDA-Public Use
  Company Number: US-BAYER-2016-116212

PATIENT
  Sex: Female

DRUGS (1)
  1. LOTRIMIN ULTRA [Suspect]
     Active Substance: BUTENAFINE HYDROCHLORIDE
     Indication: TINEA CRURIS
     Dosage: UNK
     Route: 061
     Dates: start: 201606, end: 201606

REACTIONS (2)
  - Groin pain [Recovered/Resolved]
  - Skin abrasion [Recovered/Resolved]

NARRATIVE: CASE EVENT DATE: 201606
